FAERS Safety Report 6825558-4 (Version None)
Quarter: 2010Q3

REPORT INFORMATION
  Report Type: 
  Country: None (occurrence: None)
  Receive Date: 20100708
  Receipt Date: 20070317
  Transmission Date: 20110219
  Serious: No
  Sender: FDA-Public Use
  Company Number: US-PFIZER INC-2007000955

PATIENT
  Sex: Female
  Weight: 63.5 kg

DRUGS (5)
  1. CHANTIX [Suspect]
     Indication: SMOKING CESSATION THERAPY
     Dates: start: 20061201, end: 20061215
  2. LOTREL [Concomitant]
     Indication: HYPERTENSION
  3. XANAX [Concomitant]
  4. PRAVACHOL [Concomitant]
     Indication: BLOOD CHOLESTEROL INCREASED
  5. TRICOR [Concomitant]
     Indication: BLOOD CHOLESTEROL INCREASED

REACTIONS (7)
  - CHILLS [None]
  - MALAISE [None]
  - NAUSEA [None]
  - PYREXIA [None]
  - TREMOR [None]
  - VERTIGO [None]
  - WEIGHT INCREASED [None]
